FAERS Safety Report 19004451 (Version 1)
Quarter: 2021Q1

REPORT INFORMATION
  Report Type: Spontaneous
  Country: US (occurrence: US)
  Receive Date: 20210313
  Receipt Date: 20210313
  Transmission Date: 20210420
  Serious: Yes (Other)
  Sender: FDA-Public Use
  Company Number: US-GLAND PHARMA LIMITED-2021US002020

PATIENT
  Age: 2 Year
  Sex: Male

DRUGS (2)
  1. PREDNISONE. [Concomitant]
     Active Substance: PREDNISONE
     Indication: ROSAI-DORFMAN SYNDROME
     Dosage: 2 MG/KG, DAILY
     Route: 065
  2. CLOFARABINE. [Suspect]
     Active Substance: CLOFARABINE
     Indication: LYMPHADENOPATHY
     Dosage: 25 MG/M2, CYCLIC
     Route: 065

REACTIONS (2)
  - Rosai-Dorfman syndrome [Recovering/Resolving]
  - Disease progression [Recovering/Resolving]
